FAERS Safety Report 7629769-X (Version None)
Quarter: 2011Q3

REPORT INFORMATION
  Report Type: 
  Country: None (occurrence: None)
  Receive Date: 20110722
  Receipt Date: 20110713
  Transmission Date: 20111222
  Serious: Yes (Hospitalization, Other)
  Sender: FDA-Public Use
  Company Number: JP-SANOFI-AVENTIS-2011SA038599

PATIENT
  Age: 87 Year
  Sex: Male
  Weight: 45 kg

DRUGS (19)
  1. ISALON [Concomitant]
     Route: 065
     Dates: end: 20110609
  2. RHYTHMY [Concomitant]
     Route: 065
     Dates: start: 20110608, end: 20110613
  3. TAMSULOSIN HYDROCHLORIDE [Concomitant]
     Indication: HYPERTENSION
     Route: 065
     Dates: end: 20110613
  4. VOLTAREN [Concomitant]
     Route: 054
  5. FAMOTIDINE [Concomitant]
     Route: 065
     Dates: end: 20110613
  6. METOPROLOL TARTRATE [Concomitant]
     Indication: ARRHYTHMIA
     Route: 065
     Dates: end: 20110613
  7. METOPROLOL TARTRATE [Concomitant]
     Indication: HYPERTENSION
     Route: 065
     Dates: end: 20110613
  8. ZOLPIDEM [Suspect]
     Route: 048
     Dates: end: 20110613
  9. FAMOTIDINE [Suspect]
     Dosage: START DATE: 14-JUN-2011.
     Route: 048
     Dates: start: 20110601
  10. LOPRESSOR [Concomitant]
     Indication: HYPERTENSION
     Route: 065
     Dates: start: 20110614
  11. EVIPROSTAT [Concomitant]
     Route: 065
  12. ALOSENN [Concomitant]
     Route: 065
  13. LOPRESSOR [Concomitant]
     Indication: ARRHYTHMIA
     Route: 065
     Dates: start: 20110614
  14. TAMSULOSIN HCL [Concomitant]
     Indication: HYPERTENSION
     Route: 065
     Dates: start: 20110614
  15. DIAZEPAM [Concomitant]
     Route: 065
     Dates: start: 20110605, end: 20110611
  16. WARFARIN SODIUM [Concomitant]
     Indication: CEREBRAL INFARCTION
     Route: 065
  17. CELECOXIB [Concomitant]
     Route: 065
     Dates: end: 20110609
  18. BROTIZOLAM [Concomitant]
     Route: 065
     Dates: start: 20110614
  19. SEISHOKU [Concomitant]
     Route: 065
     Dates: start: 20110603, end: 20110609

REACTIONS (5)
  - DELIRIUM [None]
  - LUMBAR VERTEBRAL FRACTURE [None]
  - DELUSION [None]
  - SOMNAMBULISM [None]
  - AMNESIA [None]
